FAERS Safety Report 15655008 (Version 2)
Quarter: 2018Q4

REPORT INFORMATION
  Report Type: Spontaneous
  Country: DE (occurrence: DE)
  Receive Date: 20181126
  Receipt Date: 20181213
  Transmission Date: 20190205
  Serious: Yes (Hospitalization, Other)
  Sender: FDA-Public Use
  Company Number: DE-ROCHE-2217554

PATIENT
  Age: 47 Year
  Sex: Female

DRUGS (2)
  1. PREDNISOLON [Concomitant]
     Active Substance: PREDNISOLONE
     Route: 065
     Dates: start: 201807
  2. OCREVUS [Suspect]
     Active Substance: OCRELIZUMAB
     Indication: RELAPSING MULTIPLE SCLEROSIS
     Dosage: CURRENTLY 2 CYCLES RECEIVED
     Route: 042
     Dates: start: 20180308

REACTIONS (2)
  - Pneumonia [Unknown]
  - Intervertebral discitis [Unknown]

NARRATIVE: CASE EVENT DATE: 20180801
